FAERS Safety Report 16397701 (Version 1)
Quarter: 2019Q2

REPORT INFORMATION
  Report Type: Spontaneous
  Country: FR (occurrence: FR)
  Receive Date: 20190606
  Receipt Date: 20190606
  Transmission Date: 20190711
  Serious: Yes (Hospitalization)
  Sender: FDA-Public Use
  Company Number: FR-ACCORD-131549

PATIENT
  Age: 70 Year
  Sex: Male
  Weight: 66.8 kg

DRUGS (6)
  1. DIFFU K [Concomitant]
     Active Substance: POTASSIUM CHLORIDE
  2. CETIRIZINE/CETIRIZINE HYDROCHLORIDE [Concomitant]
  3. CORDARONE [Suspect]
     Active Substance: AMIODARONE HYDROCHLORIDE
     Indication: CARDIAC FAILURE
     Dosage: ONE TABLET IN THE EVENING EXCEPT SATURDAY AND SUNDAY
     Route: 048
     Dates: start: 201808, end: 201810
  4. ABASAGLAR [Concomitant]
     Active Substance: INSULIN GLARGINE
  5. ALPRAZOLAM. [Concomitant]
     Active Substance: ALPRAZOLAM
  6. SPIRONOLACTONE. [Suspect]
     Active Substance: SPIRONOLACTONE
     Indication: CARDIAC FAILURE
     Dosage: 2 TABLETS IN THE MORNING AND 1 TO NOON EVERY DAY
     Route: 048
     Dates: start: 201808, end: 201810

REACTIONS (3)
  - Pruritus [Recovered/Resolved]
  - Rash papular [Recovered/Resolved]
  - Dermatitis exfoliative generalised [Recovered/Resolved]

NARRATIVE: CASE EVENT DATE: 201808
